FAERS Safety Report 11826668 (Version 1)
Quarter: 2015Q4

REPORT INFORMATION
  Report Type: Spontaneous
  Country: JP (occurrence: JP)
  Receive Date: 20151211
  Receipt Date: 20151211
  Transmission Date: 20160305
  Serious: Yes (Other)
  Sender: FDA-Public Use
  Company Number: JP-SA-2015SA208709

PATIENT
  Age: 47 Year
  Sex: Female

DRUGS (1)
  1. MYSLEE [Suspect]
     Active Substance: ZOLPIDEM TARTRATE
     Dosage: DOSE: DIVIDED TABLET 10 MG INTO FOUR AND TOOK 1/4 AT 7:30 A.M.
     Route: 048

REACTIONS (3)
  - Intentional product misuse [Unknown]
  - Road traffic accident [Unknown]
  - Alcohol interaction [Unknown]
